FAERS Safety Report 20310865 (Version 5)
Quarter: 2022Q2

REPORT INFORMATION
  Report Type: Report from Study
  Country: DE (occurrence: DE)
  Receive Date: 20220107
  Receipt Date: 20220509
  Transmission Date: 20220720
  Serious: Yes (Death, Life-Threatening, Hospitalization, Other)
  Sender: FDA-Public Use
  Company Number: DE-BRISTOL-MYERS SQUIBB COMPANY-BMS-2022-002053

PATIENT
  Age: 72 Year
  Sex: Male
  Weight: 66.9 kg

DRUGS (3)
  1. NIVOLUMAB [Suspect]
     Active Substance: NIVOLUMAB
     Indication: Adenocarcinoma gastric
     Dosage: 210 MILLIGRAM, Q2WK
     Route: 042
     Dates: start: 20201216, end: 20210922
  2. IPILIMUMAB [Suspect]
     Active Substance: IPILIMUMAB
     Indication: Adenocarcinoma gastric
     Dosage: 70 MILLIGRAM, Q6WK
     Route: 042
     Dates: start: 20201216, end: 20210825
  3. EDOXABAN [Concomitant]
     Active Substance: EDOXABAN
     Indication: Atrial fibrillation
     Dosage: 60 MILLIGRAM, QD
     Route: 048
     Dates: start: 20210303

REACTIONS (1)
  - Cerebral infarction [Fatal]

NARRATIVE: CASE EVENT DATE: 20211216
